FAERS Safety Report 5261748-2 (Version None)
Quarter: 2007Q1

REPORT INFORMATION
  Report Type: 
  Country: None (occurrence: None)
  Receive Date: 20061215
  Receipt Date: 20051213
  Transmission Date: 20070707
  Serious: Yes (Life-Threatening)
  Sender: FDA-Public Use
  Company Number: 05H-163-0304196-00

PATIENT
  Sex: Male
  Weight: 164.2021 kg

DRUGS (1)
  1. MORPHINE SULFATE INJ [Suspect]
     Dosage: 2 MG, PCA DOSE 10 MIN LOCKOUT 1.5MG/HR

REACTIONS (1)
  - RESPIRATORY ARREST [None]
